FAERS Safety Report 5592498-0 (Version None)
Quarter: 2008Q1

REPORT INFORMATION
  Report Type: 
  Country: None (occurrence: None)
  Receive Date: 20080111
  Receipt Date: 20080103
  Transmission Date: 20080703
  Serious: Yes (Other)
  Sender: FDA-Public Use
  Company Number: 2008S1000263

PATIENT
  Sex: Male

DRUGS (1)
  1. CLARITHROMYCIN DURA (CLARITHROMYCIN) [Suspect]
     Indication: BACTERIAL INFECTION
     Dosage: ORAL
     Route: 048
     Dates: start: 20071231, end: 20080103

REACTIONS (3)
  - DEAFNESS [None]
  - HYPERSENSITIVITY [None]
  - SWOLLEN TONGUE [None]
